FAERS Safety Report 9547201 (Version 1)
Quarter: 2013Q2

REPORT INFORMATION
  Report Type: Spontaneous
  Country: US (occurrence: None)
  Receive Date: 20130606
  Receipt Date: 20130606
  Transmission Date: 20140414
  Serious: No
  Sender: FDA-Public Use
  Company Number: 163-POMAL-13043847

PATIENT
  Age: 66 Year
  Sex: Female

DRUGS (11)
  1. POMALYST (POMALIDOMIDE) (4 MILLIGRAM, CAPSULES) [Suspect]
     Indication: PLASMA CELL MYELOMA
     Route: 048
     Dates: start: 201303
  2. PREVACID (LANSOPRAZOLE) [Concomitant]
  3. OMEGA-3 (OMEGA-3 TRIGLYCERIDES) (CAPSULES) [Concomitant]
  4. CALCIUM + D (CALCIUM D3 ^STADA^) [Concomitant]
  5. COMPLEX (BECOSYM FORTE) [Concomitant]
  6. TURMERIC (TURMERIC) [Concomitant]
  7. BIOTIN (BIOTIN) [Concomitant]
  8. ZOMETA (ZOLEDRONIC ACID) [Concomitant]
  9. ASPIRIN (ACETYLSALICYLIC ACID) [Concomitant]
  10. OCUVITE (OCUVITE) [Concomitant]
  11. VITAMIN D (ERGOCALCIFEROL) [Concomitant]

REACTIONS (1)
  - Platelet count decreased [None]
